FAERS Safety Report 21046460 (Version 1)
Quarter: 2022Q3

REPORT INFORMATION
  Report Type: Spontaneous
  Country: US (occurrence: US)
  Receive Date: 20220706
  Receipt Date: 20220706
  Transmission Date: 20221027
  Serious: No
  Sender: FDA-Public Use
  Company Number: US-ALLERGAN-2217730US

PATIENT
  Sex: Female

DRUGS (2)
  1. UBRELVY [Suspect]
     Active Substance: UBROGEPANT
     Indication: Migraine
     Dosage: 100 MG AT ONSET OF MIGRAINE, CAN TAKE 50 TO 100 MG IN 2 HRS AS NEEDED MAX DOSE OF 200 MG IN 24 HRS,
     Route: 048
  2. UBRELVY [Suspect]
     Active Substance: UBROGEPANT
     Dosage: 100 MG AT ONSET OF MIGRAINE, CAN TAKE 50 TO 100 MG IN 2 HRS AS NEEDED MAX DOSE OF 200 MG IN 24 HRS,
     Route: 048

REACTIONS (2)
  - Product dose omission issue [Unknown]
  - Migraine [Unknown]
